FAERS Safety Report 20099038 (Version 1)
Quarter: 2021Q4

REPORT INFORMATION
  Report Type: Spontaneous
  Country: US (occurrence: None)
  Receive Date: 20211121
  Receipt Date: 20211121
  Transmission Date: 20220303
  Serious: No
  Sender: FDA-Public Use
  Company Number: None

PATIENT

DRUGS (1)
  1. FENTANYL [Suspect]
     Active Substance: FENTANYL

REACTIONS (4)
  - Packaging design issue [None]
  - Physical product label issue [None]
  - Transcription medication error [None]
  - Intercepted product dispensing error [None]
